FAERS Safety Report 5418165-1 (Version None)
Quarter: 2007Q3

REPORT INFORMATION
  Report Type: 
  Country: None (occurrence: None)
  Receive Date: 20070817
  Receipt Date: 20070808
  Transmission Date: 20080115
  Serious: Yes (Hospitalization, Other)
  Sender: FDA-Public Use
  Company Number: US-ELI_LILLY_AND_COMPANY-US200706005506

PATIENT
  Age: 60 Year
  Sex: Male

DRUGS (6)
  1. HUMALOG [Suspect]
     Dosage: 6 U, UNK
     Dates: start: 20070601
  2. HUMALOG [Suspect]
     Dosage: 3 U, UNK
  3. HUMALOG [Suspect]
  4. LANTUS [Concomitant]
  5. HUMULIN N [Suspect]
     Dosage: UNK, UNK
     Dates: end: 20040101
  6. HUMULIN R [Suspect]
     Dosage: UNK, UNK
     Dates: end: 20040101

REACTIONS (7)
  - BLOOD GLUCOSE INCREASED [None]
  - COMA [None]
  - DRUG INEFFECTIVE [None]
  - ELECTROLYTE IMBALANCE [None]
  - HYPOAESTHESIA [None]
  - LABORATORY TEST ABNORMAL [None]
  - MEMORY IMPAIRMENT [None]
